FAERS Safety Report 13921616 (Version 1)
Quarter: 2017Q3

REPORT INFORMATION
  Report Type: Spontaneous
  Country: US (occurrence: None)
  Receive Date: 20170830
  Receipt Date: 20170830
  Transmission Date: 20171127
  Serious: No
  Sender: FDA-Public Use
  Company Number: None

PATIENT
  Age: 52 Year
  Sex: Female
  Weight: 92.99 kg

DRUGS (7)
  1. TIROSINT [Concomitant]
     Active Substance: LEVOTHYROXINE SODIUM
  2. ZINC. [Concomitant]
     Active Substance: ZINC
  3. DOXYCYCLINE HYCLATE 100MG CAP [Suspect]
     Active Substance: DOXYCYCLINE HYCLATE
     Indication: DENTAL DISORDER PROPHYLAXIS
     Dosage: DAY 1, 2 PILLS. 1 PER DAY FOLLOWING, BY MOUTH
     Route: 048
     Dates: start: 20170710, end: 20170720
  4. CALCIUM [Concomitant]
     Active Substance: CALCIUM
  5. IRON [Concomitant]
     Active Substance: IRON
  6. MAGNESIUM [Concomitant]
     Active Substance: MAGNESIUM
  7. DOXYCYCLINE HYCLATE 100MG CAP [Suspect]
     Active Substance: DOXYCYCLINE HYCLATE
     Indication: BACTERIAL INFECTION
     Dosage: DAY 1, 2 PILLS. 1 PER DAY FOLLOWING, BY MOUTH
     Route: 048
     Dates: start: 20170710, end: 20170720

REACTIONS (1)
  - Rash [None]

NARRATIVE: CASE EVENT DATE: 20170718
